FAERS Safety Report 13481589 (Version 3)
Quarter: 2017Q3

REPORT INFORMATION
  Report Type: Spontaneous
  Country: MY (occurrence: MY)
  Receive Date: 20170425
  Receipt Date: 20170719
  Transmission Date: 20171127
  Serious: Yes (Life-Threatening, Hospitalization, Disabling, Other)
  Sender: FDA-Public Use
  Company Number: MY-ARIAD-2017MY008081

PATIENT
  Age: 41 Year
  Sex: Male
  Weight: 67 kg

DRUGS (1)
  1. ICLUSIG [Suspect]
     Active Substance: PONATINIB
     Indication: BLAST CRISIS IN MYELOGENOUS LEUKAEMIA
     Dosage: 45 MG, QD
     Route: 048
     Dates: start: 20161125, end: 20170417

REACTIONS (3)
  - Pyrexia [Unknown]
  - Neoplasm progression [Recovered/Resolved with Sequelae]
  - Bone pain [Unknown]

NARRATIVE: CASE EVENT DATE: 20170331
